FAERS Safety Report 7138006-4 (Version None)
Quarter: 2010Q4

REPORT INFORMATION
  Report Type: 
  Country: None (occurrence: None)
  Receive Date: 20101206
  Receipt Date: 20101129
  Transmission Date: 20110411
  Serious: Yes (Hospitalization)
  Sender: FDA-Public Use
  Company Number: US-AMGEN-USASP2010006766

PATIENT

DRUGS (1)
  1. ENBREL [Suspect]
     Indication: RHEUMATOID ARTHRITIS
     Dosage: 25 MG, 2 TIMES/WK
     Dates: start: 19990101, end: 20091101

REACTIONS (3)
  - INCISION SITE COMPLICATION [None]
  - POST PROCEDURAL DISCHARGE [None]
  - RENAL CELL CARCINOMA [None]
